FAERS Safety Report 5551598-1 (Version None)
Quarter: 2007Q4

REPORT INFORMATION
  Report Type: 
  Country: None (occurrence: None)
  Receive Date: 20071129
  Receipt Date: 20070508
  Transmission Date: 20080405
  Serious: Yes (Hospitalization)
  Sender: FDA-Public Use
  Company Number: US200605006234

PATIENT
  Age: 64 Year
  Sex: Male
  Weight: 88.4 kg

DRUGS (1)
  1. OLANZAPINE [Suspect]
     Dosage: 30 MG,
     Dates: start: 19940101, end: 20040101

REACTIONS (4)
  - DEPRESSION [None]
  - OVERDOSE [None]
  - TYPE 1 DIABETES MELLITUS [None]
  - WEIGHT INCREASED [None]
